FAERS Safety Report 17056925 (Version 2)
Quarter: 2019Q4

REPORT INFORMATION
  Report Type: Spontaneous
  Country: US (occurrence: US)
  Receive Date: 20191121
  Receipt Date: 20191126
  Transmission Date: 20200122
  Serious: No
  Sender: FDA-Public Use
  Company Number: US-AMGEN-USASP2019192492

PATIENT
  Age: 71 Year
  Sex: Male
  Weight: 71.2 kg

DRUGS (3)
  1. REPATHA [Suspect]
     Active Substance: EVOLOCUMAB
     Dosage: UNK UNK, Q6WK
     Route: 065
  2. REPATHA [Suspect]
     Active Substance: EVOLOCUMAB
     Indication: BLOOD CHOLESTEROL INCREASED
     Dosage: UNK UNK, Q3WK
     Route: 065
     Dates: start: 201803
  3. REPATHA [Suspect]
     Active Substance: EVOLOCUMAB
     Dosage: 140 MILLIGRAM, QMO
     Route: 065
     Dates: start: 201806

REACTIONS (6)
  - Exercise tolerance decreased [Unknown]
  - Off label use [Unknown]
  - Musculoskeletal pain [Unknown]
  - Injection site pain [Unknown]
  - Gait disturbance [Unknown]
  - Asthenia [Unknown]
